FAERS Safety Report 8471458-6 (Version None)
Quarter: 2012Q2

REPORT INFORMATION
  Report Type: 
  Country: None (occurrence: None)
  Receive Date: 20120627
  Receipt Date: 20120625
  Transmission Date: 20120825
  Serious: Yes (Other)
  Sender: FDA-Public Use
  Company Number: PHEH2012US010232

PATIENT
  Sex: Female

DRUGS (11)
  1. HUMALOG [Concomitant]
     Dosage: UNK UKN, UNK
  2. TEMAZEPAM [Concomitant]
     Dosage: UNK UKN, UNK
  3. SYNTHROID [Concomitant]
     Dosage: UNK UKN, UNK
  4. DIOVAN [Suspect]
     Indication: RENAL DISORDER
     Dosage: 160 MG, ONCE PER DAY
  5. PRISTIQ [Concomitant]
     Dosage: UNK UKN, UNK
  6. METHOTREXATE [Concomitant]
  7. PLAVIX [Concomitant]
     Dosage: UNK UKN, UNK
  8. LYRICA [Concomitant]
     Dosage: UNK UKN, UNK
  9. ORENCIA [Concomitant]
     Dosage: UNK UKN, UNK
  10. CRESTOR [Concomitant]
  11. CARISOPRODOL [Concomitant]
     Dosage: UNK UKN, UNK

REACTIONS (1)
  - ANKLE FRACTURE [None]
